FAERS Safety Report 8817702 (Version 1)
Quarter: 2012Q4

REPORT INFORMATION
  Report Type: 
  Country: GB (occurrence: GB)
  Receive Date: 20121001
  Receipt Date: 20121001
  Transmission Date: 20130627
  Serious: Yes (Disabling, Other)
  Sender: FDA-Public Use
  Company Number: GB-PFIZER INC-2012234375

PATIENT
  Age: 75 Year
  Sex: Female

DRUGS (4)
  1. XALATAN [Suspect]
     Dosage: 1 drop at night.
     Route: 050
     Dates: start: 20100920, end: 20120901
  2. BRIMONIDINE [Concomitant]
     Dosage: 1 drop in each eye
     Route: 050
     Dates: start: 20120720, end: 20120809
  3. BRINZOLAMIDE [Concomitant]
     Dosage: 10 mg/ml, UNK
     Route: 050
     Dates: start: 20120709
  4. TRAVOPROST [Concomitant]
     Dosage: 40 mg, 1 drop twice daily
     Route: 050
     Dates: start: 2012, end: 20120709

REACTIONS (2)
  - Dry mouth [Recovered/Resolved]
  - Abnormal behaviour [Recovered/Resolved]
